FAERS Safety Report 25193295 (Version 4)
Quarter: 2025Q2

REPORT INFORMATION
  Report Type: Report from Study
  Country: KR (occurrence: KR)
  Receive Date: 20250414
  Receipt Date: 20250623
  Transmission Date: 20250717
  Serious: Yes (Hospitalization)
  Sender: ABBVIE
  Company Number: KR-PFIZER INC-PV202500042098

PATIENT
  Age: 72 Year
  Sex: Male
  Weight: 55.7 kg

DRUGS (23)
  1. AVIBACTAM SODIUM\CEFTAZIDIME [Suspect]
     Active Substance: AVIBACTAM SODIUM\CEFTAZIDIME
     Indication: Abdominal infection
     Route: 042
     Dates: start: 20240903, end: 20240909
  2. AVELOX [Concomitant]
     Active Substance: MOXIFLOXACIN HYDROCHLORIDE
     Indication: Infection prophylaxis
     Route: 048
     Dates: start: 20240910, end: 20240913
  3. PANTOPRAZOLE SODIUM [Concomitant]
     Active Substance: PANTOPRAZOLE SODIUM
     Indication: Gastritis prophylaxis
     Route: 042
     Dates: start: 20240915, end: 20240918
  4. GASTER [Concomitant]
     Active Substance: FAMOTIDINE
     Indication: Gastritis prophylaxis
     Route: 042
     Dates: start: 20240914, end: 20240914
  5. NORZYME [Concomitant]
     Indication: Pancreaticoduodenectomy
     Route: 048
     Dates: start: 20240922
  6. NORZYME [Concomitant]
     Indication: Pancreaticoduodenectomy
     Route: 048
     Dates: start: 20240825, end: 20240913
  7. ACETPHEN PREMIX [Concomitant]
     Indication: Myalgia
     Route: 042
     Dates: start: 20240918, end: 20240918
  8. CEFTRIAXONE SODIUM [Concomitant]
     Active Substance: CEFTRIAXONE SODIUM
     Indication: Infection prophylaxis
     Route: 042
     Dates: start: 20240914, end: 20240914
  9. K CAP [Concomitant]
     Indication: Gastritis prophylaxis
     Route: 042
     Dates: start: 20240922
  10. URSODEOXYCHOLATE MAGNESIUM [Concomitant]
     Indication: Prophylaxis
     Route: 048
     Dates: start: 20240905, end: 20240913
  11. NEXIUM [Concomitant]
     Active Substance: ESOMEPRAZOLE MAGNESIUM
     Indication: Gastritis prophylaxis
     Route: 048
     Dates: start: 20240825, end: 20240913
  12. HUONS HEPARIN SODIUM [Concomitant]
     Indication: Catheter management
     Route: 042
     Dates: start: 20240916
  13. ASPIRIN [Suspect]
     Active Substance: ASPIRIN
     Indication: Stent placement
     Dosage: DOSE: 100 MG, 1 TABLET ONCE DAILY (QD), ASPIRIN HANMI TAB, ENTERIC-COATED?CUMULATIVE DOSE: 500 MG
     Route: 042
     Dates: start: 20240920, end: 20240924
  14. AMINO ACIDS\DEXTROSE\ELECTROLYTES NOS\SOYBEAN OIL\VITAMINS [Concomitant]
     Active Substance: AMINO ACIDS\DEXTROSE\ELECTROLYTES NOS\SOYBEAN OIL\VITAMINS
     Indication: Prophylaxis
     Route: 042
     Dates: start: 20240917, end: 20240920
  15. VITAMINS [Concomitant]
     Active Substance: VITAMINS
     Indication: Prophylaxis
     Route: 042
     Dates: start: 20240914, end: 20240914
  16. TRANEXAMIC ACID [Concomitant]
     Active Substance: TRANEXAMIC ACID
     Indication: Vascular pseudoaneurysm
     Route: 042
     Dates: start: 20240914, end: 20240914
  17. SINIL M [Concomitant]
     Indication: Prophylaxis
     Route: 048
     Dates: start: 20240902, end: 20240913
  18. CEFOTAXIME SODIUM [Concomitant]
     Active Substance: CEFOTAXIME SODIUM
     Indication: Infection prophylaxis
     Route: 042
     Dates: start: 20240916, end: 20240920
  19. DULACKHAN EASY [Concomitant]
     Indication: Constipation
     Route: 042
     Dates: start: 20240901, end: 20240913
  20. SODIUM BICARBONATE [Concomitant]
     Active Substance: SODIUM BICARBONATE
     Indication: Premedication
     Route: 042
     Dates: start: 20240914, end: 20240914
  21. ALBUMIN HUMAN [Concomitant]
     Active Substance: ALBUMIN HUMAN
     Indication: Prophylaxis
     Route: 042
     Dates: start: 20240914, end: 20240914
  22. BIOFLOR [Concomitant]
     Indication: Constipation
     Route: 048
     Dates: start: 20240902, end: 20240913
  23. CETAMADOL [Concomitant]
     Indication: Pain
     Route: 048
     Dates: start: 20240825, end: 20240913

REACTIONS (1)
  - Haematochezia [Recovered/Resolved]

NARRATIVE: CASE EVENT DATE: 20240924
